FAERS Safety Report 15022720 (Version 4)
Quarter: 2018Q3

REPORT INFORMATION
  Report Type: Spontaneous
  Country: CZ (occurrence: CZ)
  Receive Date: 20180618
  Receipt Date: 20180808
  Transmission Date: 20181010
  Serious: Yes (Hospitalization)
  Sender: FDA-Public Use
  Company Number: PHHY2018CZ023808

PATIENT
  Sex: Female

DRUGS (16)
  1. ZINFORO [Suspect]
     Active Substance: CEFTAROLINE FOSAMIL
     Indication: SEPTIC SHOCK
  2. GENTAMICIN. [Suspect]
     Active Substance: GENTAMICIN
     Indication: PNEUMONIA
  3. METRONIDAZOLE. [Suspect]
     Active Substance: METRONIDAZOLE
     Indication: MEDIASTINITIS
  4. GENTAMICIN. [Suspect]
     Active Substance: GENTAMICIN
     Indication: ABSCESS
     Dosage: 240 MG, QD
     Route: 065
  5. METRONIDAZOLE. [Suspect]
     Active Substance: METRONIDAZOLE
     Indication: PNEUMONIA
     Dosage: 2 G, QD (1 G, 2X/DAY)
     Route: 065
  6. MYCOMAX [Concomitant]
     Active Substance: FLUCONAZOLE
     Indication: FUNGAL INFECTION
     Dosage: 1600 MG, QD (800 MG, 2X/DAY)
     Route: 065
  7. GENTAMICIN. [Suspect]
     Active Substance: GENTAMICIN
     Indication: MEDIASTINITIS
  8. METRONIDAZOLE. [Suspect]
     Active Substance: METRONIDAZOLE
     Indication: ABSCESS
  9. METRONIDAZOLE. [Suspect]
     Active Substance: METRONIDAZOLE
     Indication: SKIN ULCER
  10. ZINFORO [Suspect]
     Active Substance: CEFTAROLINE FOSAMIL
     Indication: ABSCESS
  11. ZINFORO [Suspect]
     Active Substance: CEFTAROLINE FOSAMIL
     Indication: PNEUMONIA
  12. ZINFORO [Suspect]
     Active Substance: CEFTAROLINE FOSAMIL
     Indication: MEDIASTINITIS
  13. GARAMYCIN [Suspect]
     Active Substance: GENTAMICIN SULFATE
     Indication: MEDIASTINITIS
     Dosage: UNK
     Route: 065
  14. GENTAMICIN. [Suspect]
     Active Substance: GENTAMICIN
     Indication: SKIN ULCER
  15. ZINFORO [Suspect]
     Active Substance: CEFTAROLINE FOSAMIL
     Indication: SKIN ULCER
     Dosage: 1200 MG, QD (600 MG, 2X/DAY)
     Route: 065
  16. GARAMYCIN [Suspect]
     Active Substance: GENTAMICIN SULFATE
     Indication: SKIN ULCER

REACTIONS (2)
  - Inflammatory marker increased [Recovered/Resolved]
  - Drug ineffective [Unknown]
